FAERS Safety Report 5314980-3 (Version None)
Quarter: 2007Q2

REPORT INFORMATION
  Report Type: 
  Country: None (occurrence: None)
  Receive Date: 20070502
  Receipt Date: 20070420
  Transmission Date: 20071010
  Serious: Yes (Other)
  Sender: FDA-Public Use
  Company Number: PHBS2007ZA06974

PATIENT
  Sex: Female

DRUGS (3)
  1. TEGRETOL [Suspect]
     Dosage: UNK, UNK
     Route: 048
  2. LITHIUM CARBONATE [Concomitant]
  3. SEROQUEL [Concomitant]

REACTIONS (2)
  - ALOPECIA [None]
  - PSYCHOTIC DISORDER [None]
